FAERS Safety Report 14704765 (Version 1)
Quarter: 2018Q2

REPORT INFORMATION
  Report Type: Spontaneous
  Country: TR (occurrence: TR)
  Receive Date: 20180402
  Receipt Date: 20180402
  Transmission Date: 20180711
  Serious: Yes (Hospitalization)
  Sender: FDA-Public Use
  Company Number: TR-B.I. PHARMACEUTICALS,INC./RIDGEFIELD-2018-BI-017781

PATIENT
  Age: 64 Year
  Sex: Female
  Weight: 93 kg

DRUGS (1)
  1. TRAJENTA [Suspect]
     Active Substance: LINAGLIPTIN
     Indication: GLYCOSYLATED HAEMOGLOBIN INCREASED
     Route: 048

REACTIONS (1)
  - Blood pressure increased [Recovering/Resolving]
